FAERS Safety Report 9429526 (Version 1)
Quarter: 2013Q3

REPORT INFORMATION
  Report Type: Report from Study
  Country: US (occurrence: US)
  Receive Date: 20130730
  Receipt Date: 20130730
  Transmission Date: 20140515
  Serious: No
  Sender: FDA-Public Use
  Company Number: US-ABBOTT-13P-163-1043183-00

PATIENT
  Sex: Male
  Weight: 79 kg

DRUGS (3)
  1. NIASPAN (COATED) [Suspect]
     Indication: LOW DENSITY LIPOPROTEIN INCREASED
     Dates: end: 201207
  2. NIASPAN (COATED) [Suspect]
  3. VITAMIN B3 [Concomitant]
     Indication: PRODUCT USED FOR UNKNOWN INDICATION

REACTIONS (4)
  - Urticaria [Recovered/Resolved]
  - Flushing [Unknown]
  - Oesophageal oedema [Recovered/Resolved]
  - Urticaria [Recovered/Resolved]
